FAERS Safety Report 9114111 (Version 1)
Quarter: 2013Q1

REPORT INFORMATION
  Report Type: Spontaneous
  Country: US (occurrence: US)
  Receive Date: 20130208
  Receipt Date: 20130208
  Transmission Date: 20140127
  Serious: Yes (Death)
  Sender: FDA-Public Use
  Company Number: CHPA2013US002389

PATIENT
  Age: 45 Year
  Sex: Female

DRUGS (7)
  1. DIPHENHYDRAMINE [Suspect]
     Dosage: UNK, UNK
  2. FENTANYL [Suspect]
     Dosage: UNK, UNK
  3. AMITRIPTYLINE [Suspect]
     Dosage: UNK, UNK
  4. DIAZEPAM [Suspect]
     Dosage: UNK, UNK
  5. PROMETHAZINE [Suspect]
     Dosage: UNK, UNK
  6. LAXATIVES [Suspect]
     Dosage: UNK, UNK
  7. QUETIAPINE [Suspect]
     Dosage: UNK, UNK

REACTIONS (1)
  - Drug abuse [Fatal]
